FAERS Safety Report 23749153 (Version 2)
Quarter: 2025Q1

REPORT INFORMATION
  Report Type: Spontaneous
  Country: ES (occurrence: ES)
  Receive Date: 20240416
  Receipt Date: 20250106
  Transmission Date: 20250409
  Serious: Yes (Other)
  Sender: SANDOZ
  Company Number: ES-NOVPHSZ-GXKR2009ES06293

PATIENT
  Age: 48 Year
  Sex: Female

DRUGS (14)
  1. CAPECITABINE [Suspect]
     Active Substance: CAPECITABINE
     Indication: Breast cancer metastatic
     Route: 065
     Dates: start: 200606, end: 200712
  2. CAPECITABINE [Suspect]
     Active Substance: CAPECITABINE
     Indication: Breast cancer
  3. CARBOPLATIN [Suspect]
     Active Substance: CARBOPLATIN
     Indication: Breast cancer metastatic
     Route: 065
  4. DOCETAXEL [Suspect]
     Active Substance: DOCETAXEL
     Indication: Breast cancer metastatic
     Dosage: 100 MG/M2, QW3
     Route: 065
     Dates: start: 200712
  5. DOCETAXEL [Suspect]
     Active Substance: DOCETAXEL
     Route: 065
     Dates: start: 200712
  6. DOCETAXEL [Suspect]
     Active Substance: DOCETAXEL
     Route: 065
     Dates: start: 200712
  7. LAPATINIB [Suspect]
     Active Substance: LAPATINIB
     Indication: Breast cancer metastatic
     Route: 065
     Dates: start: 200712
  8. LAPATINIB [Suspect]
     Active Substance: LAPATINIB
     Indication: Breast cancer
  9. LAPATINIB [Suspect]
     Active Substance: LAPATINIB
     Indication: Erythema
  10. PACLITAXEL [Suspect]
     Active Substance: PACLITAXEL
     Indication: Breast cancer metastatic
     Route: 065
  11. TRASTUZUMAB [Suspect]
     Active Substance: TRASTUZUMAB
     Indication: Breast cancer
     Dosage: 2 MG/KG, QW
     Route: 065
  12. TRASTUZUMAB [Suspect]
     Active Substance: TRASTUZUMAB
     Indication: Product used for unknown indication
     Dosage: 4 MG/KG, QW
     Route: 065
  13. VINORELBINE [Suspect]
     Active Substance: VINORELBINE TARTRATE
     Indication: Product used for unknown indication
     Route: 065
  14. VINORELBINE [Suspect]
     Active Substance: VINORELBINE TARTRATE
     Indication: Breast cancer metastatic

REACTIONS (7)
  - Anaphylactic reaction [Unknown]
  - Malignant neoplasm progression [Unknown]
  - Metastases to central nervous system [Unknown]
  - Onycholysis [Unknown]
  - Palmar-plantar erythrodysaesthesia syndrome [Unknown]
  - Leukonychia [Unknown]
  - Drug tolerance decreased [Unknown]
